FAERS Safety Report 5867482-X (Version None)
Quarter: 2008Q3

REPORT INFORMATION
  Report Type: 
  Country: None (occurrence: None)
  Receive Date: 20080902
  Receipt Date: 20080825
  Transmission Date: 20090109
  Serious: Yes (Other)
  Sender: FDA-Public Use
  Company Number: US-ASTRAZENECA-2008UW17489

PATIENT
  Sex: Female

DRUGS (1)
  1. CRESTOR [Suspect]
     Route: 048
     Dates: start: 20080701

REACTIONS (4)
  - BREAST TENDERNESS [None]
  - PYREXIA [None]
  - SWEAT GLAND DISORDER [None]
  - VAGINAL NEOPLASM [None]
